FAERS Safety Report 4846623-7 (Version None)
Quarter: 2005Q4

REPORT INFORMATION
  Report Type: 
  Country: None (occurrence: None)
  Receive Date: 20051206
  Receipt Date: 20051018
  Transmission Date: 20060501
  Serious: Yes (Hospitalization)
  Sender: FDA-Public Use
  Company Number: PHHO2005JP16538

PATIENT
  Age: 70 Year
  Sex: Male

DRUGS (3)
  1. DIOVAN [Suspect]
     Indication: HYPERTENSION
     Dosage: 80 MG, QD
     Route: 048
     Dates: start: 20021210, end: 20040721
  2. HERBESSER [Concomitant]
     Indication: HYPERTENSION
     Dosage: 90 MG DAILY DOSE
     Route: 048
     Dates: start: 20030107, end: 20040721
  3. CARNACULIN [Concomitant]
     Dosage: 150 IU
     Route: 048
     Dates: start: 20031210, end: 20040721

REACTIONS (5)
  - BLOOD GLUCOSE INCREASED [None]
  - CAROTID ARTERY STENOSIS [None]
  - CEREBRAL INFARCTION [None]
  - CEREBRAL THROMBOSIS [None]
  - HEMIPARESIS [None]
